FAERS Safety Report 24942909 (Version 1)
Quarter: 2025Q1

REPORT INFORMATION
  Report Type: Spontaneous
  Country: NL (occurrence: GB)
  Receive Date: 20250207
  Receipt Date: 20250207
  Transmission Date: 20250409
  Serious: Yes (Other)
  Sender: PFIZER
  Company Number: NL-BIOVITRUM-2025-NL-001470

PATIENT
  Age: 21 Year
  Sex: Male

DRUGS (3)
  1. RITUXIMAB [Suspect]
     Active Substance: RITUXIMAB
  2. DOPTELET [Suspect]
     Active Substance: AVATROMBOPAG MALEATE
  3. MYCOPHENOLATE MOFETIL [Suspect]
     Active Substance: MYCOPHENOLATE MOFETIL

REACTIONS (1)
  - Myelodysplastic syndrome with multilineage dysplasia [Unknown]
